FAERS Safety Report 5956313-5 (Version None)
Quarter: 2008Q4

REPORT INFORMATION
  Report Type: 
  Country: None (occurrence: None)
  Receive Date: 20081118
  Receipt Date: 20081106
  Transmission Date: 20090506
  Serious: Yes (Other)
  Sender: FDA-Public Use
  Company Number: PHHY2008FI27187

PATIENT
  Age: 50 Year
  Sex: Female

DRUGS (2)
  1. TASIGNA [Suspect]
     Indication: CHRONIC MYELOID LEUKAEMIA
     Dosage: 2 DF, BID
  2. DRUG THERAPY NOS [Concomitant]
     Dosage: UNK

REACTIONS (1)
  - SKIN DISORDER [None]
